FAERS Safety Report 10079468 (Version 1)
Quarter: 2014Q2

REPORT INFORMATION
  Report Type: Report from Study
  Country: US (occurrence: US)
  Receive Date: 20140415
  Receipt Date: 20140415
  Transmission Date: 20141212
  Serious: Yes (Hospitalization)
  Sender: FDA-Public Use
  Company Number: US-SA-2014SA043519

PATIENT
  Age: 54 Year
  Sex: Male
  Weight: 90.72 kg

DRUGS (7)
  1. TAXOTERE [Suspect]
     Indication: SARCOMA METASTATIC
     Dosage: FREQUENCY: DAY 8 OF EACH 21 DAY CYCLE?FORM:INTRAVENOUS INFUSION
     Route: 042
     Dates: start: 20140304
  2. GEMCITABINE [Suspect]
     Indication: SARCOMA METASTATIC
     Dosage: FORM:INTRAVENOUS INFUSION?DAY 1 AND 8 OF EACH 21 DAY CYCLE
     Route: 042
     Dates: start: 20140225
  3. INVESTIGATIONAL DRUG [Suspect]
     Indication: SARCOMA METASTATIC
     Dosage: FORM:INTRAVENOUS INFUSION?FREQUENCY:DAY 1 AND 8 OF EACH 21 DAY CYCLE
     Route: 042
     Dates: start: 20140225
  4. ZOFRAN [Concomitant]
  5. DEXAMETHASONE [Concomitant]
  6. BENADRYL [Concomitant]
  7. TYLENOL [Concomitant]

REACTIONS (4)
  - Hypophosphataemia [Recovering/Resolving]
  - Febrile neutropenia [Recovering/Resolving]
  - Platelet count decreased [Recovering/Resolving]
  - Hypokalaemia [Recovering/Resolving]
